FAERS Safety Report 5253204-2 (Version None)
Quarter: 2007Q1

REPORT INFORMATION
  Report Type: 
  Country: None (occurrence: None)
  Receive Date: 20061201
  Receipt Date: 20060825
  Transmission Date: 20070707
  Serious: No
  Sender: FDA-Public Use
  Company Number: 2006PV020146

PATIENT
  Age: 54 Year
  Sex: Female
  Weight: 104.3273 kg

DRUGS (6)
  1. BYETTA [Suspect]
     Indication: DIABETES MELLITUS NON-INSULIN-DEPENDENT
     Dosage: 5 MCG; BID; SC
     Route: 058
     Dates: start: 20060811
  2. METFORMIN HCL [Concomitant]
  3. VITAMINS [Concomitant]
  4. TOPROL-XL [Concomitant]
  5. POTASSIUM ACETATE [Concomitant]
  6. LASIX [Concomitant]

REACTIONS (6)
  - ABDOMINAL DISTENSION [None]
  - DECREASED APPETITE [None]
  - DYSPNOEA [None]
  - FLUID RETENTION [None]
  - NAUSEA [None]
  - WEIGHT INCREASED [None]
